FAERS Safety Report 4610404-X (Version None)
Quarter: 2005Q1

REPORT INFORMATION
  Report Type: 
  Country: None (occurrence: None)
  Receive Date: 20050314
  Receipt Date: 20050307
  Transmission Date: 20050727
  Serious: Yes (Other)
  Sender: FDA-Public Use
  Company Number: 200510251BWH

PATIENT
  Age: 67 Year
  Sex: Male

DRUGS (5)
  1. LEVITRA [Suspect]
     Indication: ERECTILE DYSFUNCTION
     Dosage: SEE IMAGE
     Route: 048
     Dates: start: 20040101
  2. VITAMINS [Concomitant]
  3. LIPITOR [Concomitant]
  4. COENZYME Q10 [Concomitant]
  5. VIAGRA [Concomitant]

REACTIONS (6)
  - DIZZINESS [None]
  - HEADACHE [None]
  - INNER EAR DISORDER [None]
  - JAUNDICE [None]
  - NAUSEA [None]
  - VOMITING [None]
